FAERS Safety Report 12944281 (Version 1)
Quarter: 2016Q4

REPORT INFORMATION
  Report Type: Spontaneous
  Country: US (occurrence: US)
  Receive Date: 20161115
  Receipt Date: 20161115
  Transmission Date: 20170207
  Serious: Yes (Other)
  Sender: FDA-Public Use
  Company Number: PHHY2016US153675

PATIENT
  Sex: Female

DRUGS (2)
  1. AMANTADINE [Suspect]
     Active Substance: AMANTADINE
     Indication: COGNITIVE DISORDER
     Dosage: 100 MG, BID
     Route: 065
  2. AMANTADINE [Suspect]
     Active Substance: AMANTADINE
     Indication: AGITATION
     Dosage: 200 MG, BID
     Route: 065

REACTIONS (4)
  - Hallucination, visual [Recovered/Resolved]
  - Disorientation [Unknown]
  - Encephalopathy [Unknown]
  - Product use issue [Unknown]
